FAERS Safety Report 7608380-0 (Version None)
Quarter: 2011Q3

REPORT INFORMATION
  Report Type: 
  Country: None (occurrence: None)
  Receive Date: 20110714
  Receipt Date: 20110713
  Transmission Date: 20111222
  Serious: Yes (Hospitalization, Other)
  Sender: FDA-Public Use
  Company Number: US-AMGEN-USANI2011031030

PATIENT
  Age: 78 Year
  Sex: Male

DRUGS (2)
  1. ETANERCEPT [Suspect]
     Indication: PSORIASIS
     Dosage: 50 MG, QWK
     Route: 058
     Dates: start: 20070105, end: 20070501
  2. REMICADE [Concomitant]
     Dosage: 600 MG, UNK
     Route: 042
     Dates: start: 20071017, end: 20110422

REACTIONS (2)
  - POST PROCEDURAL PNEUMONIA [None]
  - ADENOSQUAMOUS CELL LUNG CANCER [None]
